FAERS Safety Report 7099502-1 (Version None)
Quarter: 2010Q4

REPORT INFORMATION
  Report Type: 
  Country: None (occurrence: None)
  Receive Date: 20101112
  Receipt Date: 20101103
  Transmission Date: 20110411
  Serious: Yes (Hospitalization)
  Sender: FDA-Public Use
  Company Number: FR-JNJFOC-20101002761

PATIENT
  Age: 62 Year
  Sex: Male
  Weight: 100 kg

DRUGS (8)
  1. REMICADE [Suspect]
     Indication: PSORIASIS
     Route: 042
  2. REMICADE [Suspect]
     Route: 042
  3. REMICADE [Suspect]
     Indication: ERYTHRODERMIC PSORIASIS
     Route: 042
  4. REMICADE [Suspect]
     Route: 042
  5. TARKA [Concomitant]
     Indication: HYPERTENSION
     Route: 048
  6. SEROPLEX [Concomitant]
     Indication: DEPRESSION
     Route: 048
  7. ATARAX [Concomitant]
     Indication: ANXIETY
     Route: 048
  8. DERMOVAL [Concomitant]
     Indication: PSORIASIS
     Route: 061

REACTIONS (2)
  - PSORIASIS [None]
  - TOXIC SKIN ERUPTION [None]
